FAERS Safety Report 9888237 (Version 1)
Quarter: 2014Q1

REPORT INFORMATION
  Report Type: Spontaneous
  Country: CA (occurrence: CA)
  Receive Date: 20140211
  Receipt Date: 20140211
  Transmission Date: 20141002
  Serious: Yes (Other)
  Sender: FDA-Public Use
  Company Number: CA-SA-2014SA013797

PATIENT
  Sex: Female

DRUGS (13)
  1. TAXOTERE [Suspect]
     Indication: PRODUCT USED FOR UNKNOWN INDICATION
     Route: 065
     Dates: start: 2010
  2. HERCEPTIN [Suspect]
     Indication: BREAST CANCER METASTATIC
     Route: 042
     Dates: start: 201009
  3. TAXOL [Suspect]
     Indication: PRODUCT USED FOR UNKNOWN INDICATION
     Route: 065
     Dates: start: 2010, end: 2011
  4. FRAGMIN [Concomitant]
  5. ZOPICLONE [Concomitant]
  6. PAROXETINE [Concomitant]
  7. ALL OTHER THERAPEUTIC PRODUCTS [Concomitant]
     Dosage: SOMETIMES
  8. THERAPEUTIC RADIOPHARMACEUTICALS [Concomitant]
     Dates: start: 201008
  9. FLUOROURACIL [Concomitant]
  10. EPIRUBICIN [Concomitant]
  11. CYCLOPHOSPHAMIDE [Concomitant]
  12. CARBOPLATIN [Concomitant]
  13. ALL OTHER THERAPEUTIC PRODUCTS [Concomitant]

REACTIONS (2)
  - Pneumothorax [Unknown]
  - Disease progression [Not Recovered/Not Resolved]
